FAERS Safety Report 14914925 (Version 1)
Quarter: 2018Q2

REPORT INFORMATION
  Report Type: Spontaneous
  Country: US (occurrence: US)
  Receive Date: 20180518
  Receipt Date: 20180518
  Transmission Date: 20180711
  Serious: No
  Sender: FDA-Public Use
  Company Number: US-MYLANLABS-2018M1032179

PATIENT
  Sex: Female
  Weight: 56 kg

DRUGS (2)
  1. CLORAZEPIC ACID [Suspect]
     Active Substance: CLORAZEPIC ACID
     Indication: PRODUCT USED FOR UNKNOWN INDICATION
     Dosage: 7.5 MG, BID
     Route: 048
     Dates: end: 201804
  2. HYDROCODONE [Concomitant]
     Active Substance: HYDROCODONE
     Indication: PRODUCT USED FOR UNKNOWN INDICATION

REACTIONS (4)
  - Dyspnoea [Unknown]
  - Pain [Not Recovered/Not Resolved]
  - Tinnitus [Not Recovered/Not Resolved]
  - Off label use [Unknown]
